FAERS Safety Report 6122503-4 (Version None)
Quarter: 2009Q1

REPORT INFORMATION
  Report Type: 
  Country: None (occurrence: None)
  Receive Date: 20090318
  Receipt Date: 20081119
  Transmission Date: 20090719
  Serious: No
  Sender: FDA-Public Use
  Company Number: US-ASTRAZENECA-2008UW26001

PATIENT
  Sex: Female

DRUGS (3)
  1. SYMBICORT [Suspect]
     Dosage: TWICE DAILY
     Route: 055
  2. SYMBICORT [Suspect]
     Dosage: ONCE DAILY
     Route: 055
  3. 5 NEW MEDICINES [Concomitant]

REACTIONS (2)
  - BRONCHIAL DISORDER [None]
  - ILL-DEFINED DISORDER [None]
